FAERS Safety Report 13303321 (Version 1)
Quarter: 2017Q1

REPORT INFORMATION
  Report Type: Spontaneous
  Country: US (occurrence: US)
  Receive Date: 20170307
  Receipt Date: 20170307
  Transmission Date: 20170428
  Serious: No
  Sender: FDA-Public Use
  Company Number: US-TEVA-717648USA

PATIENT
  Age: 44 Year
  Sex: Female

DRUGS (6)
  1. LYRICA [Suspect]
     Active Substance: PREGABALIN
     Dosage: 2 TO 3 TIMES PER DAY
     Route: 048
     Dates: start: 2013
  2. CYCLOBENZAPRINE [Concomitant]
     Active Substance: CYCLOBENZAPRINE
     Dosage: 30 MILLIGRAM DAILY;
     Route: 048
  3. TRAZODONE [Concomitant]
     Active Substance: TRAZODONE HYDROCHLORIDE
     Dosage: 200 MILLIGRAM DAILY;
     Route: 048
  4. ERGOCALCIFEROL (VITAMIN D2) [Concomitant]
     Dosage: 50,000 UNIT
     Route: 048
  5. ETODOLAC. [Suspect]
     Active Substance: ETODOLAC
     Dosage: 400 MILLIGRAM DAILY; EXTENDED RELEASE 24 HR
     Route: 048
  6. SERTRALINE [Concomitant]
     Active Substance: SERTRALINE HYDROCHLORIDE
     Dosage: 100 MILLIGRAM DAILY;
     Route: 048

REACTIONS (6)
  - Depression [Unknown]
  - Musculoskeletal stiffness [Unknown]
  - Fibromyalgia [Unknown]
  - Anxiety [Unknown]
  - Drug ineffective [Unknown]
  - Ligament sprain [Unknown]

NARRATIVE: CASE EVENT DATE: 2016
